FAERS Safety Report 6368988-X (Version None)
Quarter: 2009Q3

REPORT INFORMATION
  Report Type: 
  Country: None (occurrence: None)
  Receive Date: 20090918
  Receipt Date: 20090918
  Transmission Date: 20100115
  Serious: Yes (Disabling)
  Sender: FDA-Public Use
  Company Number: None

PATIENT
  Age: 35 Year
  Sex: Female
  Weight: 79.3795 kg

DRUGS (1)
  1. PROZAC WEEKLY [Suspect]
     Dosage: 90 MG WEEKLY PO
     Route: 048

REACTIONS (9)
  - ABDOMINAL PAIN UPPER [None]
  - ANXIETY [None]
  - DECREASED APPETITE [None]
  - DIARRHOEA [None]
  - FEAR [None]
  - INSOMNIA [None]
  - OBSESSIVE THOUGHTS [None]
  - SUICIDAL IDEATION [None]
  - THINKING ABNORMAL [None]
